FAERS Safety Report 18751912 (Version 2)
Quarter: 2023Q4

REPORT INFORMATION
  Report Type: Spontaneous
  Country: US (occurrence: US)
  Receive Date: 20210118
  Receipt Date: 20231122
  Transmission Date: 20240110
  Serious: Yes (Other)
  Sender: FDA-Public Use
  Company Number: US-GSKCCFUS-CASE-00942830_AE-55911

PATIENT

DRUGS (7)
  1. NUCALA [Suspect]
     Active Substance: MEPOLIZUMAB
     Indication: Pulmonary vasculitis
     Dosage: 300 MG, CYC
  2. NUCALA [Suspect]
     Active Substance: MEPOLIZUMAB
     Dosage: 200 MG, LYO
  3. BUPROPION [Concomitant]
     Active Substance: BUPROPION
     Indication: Product used for unknown indication
     Dosage: 150 MG, QD
  4. ROSUVASTATIN [Concomitant]
     Active Substance: ROSUVASTATIN
     Indication: Product used for unknown indication
     Dosage: 40 MG, QD
  5. COMBIGAN [Concomitant]
     Active Substance: BRIMONIDINE TARTRATE\TIMOLOL MALEATE
     Indication: Product used for unknown indication
     Dosage: UNK
  6. LUMIGAN [Concomitant]
     Active Substance: BIMATOPROST
     Indication: Product used for unknown indication
     Dosage: UNK
  7. AMLODIPINE [Concomitant]
     Active Substance: AMLODIPINE BESYLATE
     Indication: Product used for unknown indication
     Dosage: 10 MG, QD

REACTIONS (12)
  - Blindness [Not Recovered/Not Resolved]
  - Neuropathy peripheral [Not Recovered/Not Resolved]
  - Fatigue [Not Recovered/Not Resolved]
  - Vision blurred [Not Recovered/Not Resolved]
  - Condition aggravated [Unknown]
  - Melanocytic naevus [Not Recovered/Not Resolved]
  - Foot deformity [Not Recovered/Not Resolved]
  - Illness [Unknown]
  - Somnolence [Unknown]
  - Feeling abnormal [Unknown]
  - Drug ineffective [Not Recovered/Not Resolved]
  - Product dose omission issue [Unknown]

NARRATIVE: CASE EVENT DATE: 20230810
